FAERS Safety Report 9265754 (Version 1)
Quarter: 2013Q2

REPORT INFORMATION
  Report Type: Spontaneous
  Country: US (occurrence: US)
  Receive Date: 20130501
  Receipt Date: 20130501
  Transmission Date: 20140414
  Serious: Yes (Other)
  Sender: FDA-Public Use
  Company Number: US-GLAXOSMITHKLINE-A0814515A

PATIENT
  Sex: Male
  Weight: 96.8 kg

DRUGS (1)
  1. AVANDIA [Suspect]
     Indication: DIABETES MELLITUS
     Route: 048
     Dates: start: 20010811, end: 20020629

REACTIONS (3)
  - Myocardial infarction [Unknown]
  - Catheterisation cardiac [Unknown]
  - Coronary artery bypass [Unknown]
